FAERS Safety Report 15040828 (Version 1)
Quarter: 2018Q2

REPORT INFORMATION
  Report Type: Spontaneous
  Country: US (occurrence: US)
  Receive Date: 20180530
  Receipt Date: 20180530
  Transmission Date: 20180711
  Serious: No
  Sender: FDA-Public Use
  Company Number: None

PATIENT
  Age: 57 Year
  Sex: Female

DRUGS (1)
  1. ZEPATIER [Suspect]
     Active Substance: ELBASVIR\GRAZOPREVIR
     Dates: start: 20180508, end: 20180530

REACTIONS (5)
  - Fatigue [None]
  - Headache [None]
  - Arrhythmia [None]
  - Heart rate increased [None]
  - Gastrointestinal disorder [None]

NARRATIVE: CASE EVENT DATE: 20180508
